FAERS Safety Report 9200686 (Version 1)
Quarter: 2013Q1

REPORT INFORMATION
  Report Type: Spontaneous
  Country: US (occurrence: US)
  Receive Date: 20130331
  Receipt Date: 20130331
  Transmission Date: 20140127
  Serious: Yes (Hospitalization)
  Sender: FDA-Public Use
  Company Number: US-ELI_LILLY_AND_COMPANY-US201303006573

PATIENT
  Sex: Female

DRUGS (3)
  1. CYMBALTA [Suspect]
     Indication: EMOTIONAL DISORDER
     Dosage: 30 MG, QD
     Dates: start: 201105
  2. CYMBALTA [Suspect]
     Dosage: 20 MG, UNKNOWN
     Dates: start: 201303
  3. CYMBALTA [Suspect]
     Dosage: 30 MG, UNKNOWN
     Dates: start: 201303

REACTIONS (6)
  - Pneumonia [Unknown]
  - Depression [Recovered/Resolved]
  - Intentional drug misuse [Unknown]
  - Libido decreased [Unknown]
  - Fatigue [Unknown]
  - Disturbance in attention [Unknown]
